FAERS Safety Report 7783402-5 (Version None)
Quarter: 2011Q3

REPORT INFORMATION
  Report Type: 
  Country: None (occurrence: None)
  Receive Date: 20110926
  Receipt Date: 20110915
  Transmission Date: 20111222
  Serious: Yes (Other)
  Sender: FDA-Public Use
  Company Number: 2011S1000300

PATIENT
  Age: 18 Month
  Sex: Male
  Weight: 11.3 kg

DRUGS (8)
  1. PHENOBARBITAL TAB [Concomitant]
  2. DIAZEPAM [Concomitant]
  3. ARTESUNATE [Concomitant]
  4. NITRIC OXIDE [Suspect]
     Indication: CEREBRAL MALARIA
     Dosage: 5 ML; CONT; INH, 3 ML: CONT; INH, 1.7 ML; CONT; INH
     Route: 055
     Dates: start: 20110915, end: 20110915
  5. NITRIC OXIDE [Suspect]
     Indication: CEREBRAL MALARIA
     Dosage: 5 ML; CONT; INH, 3 ML: CONT; INH, 1.7 ML; CONT; INH
     Route: 055
     Dates: start: 20110915, end: 20110915
  6. NITRIC OXIDE [Suspect]
     Indication: CEREBRAL MALARIA
     Dosage: 5 ML; CONT; INH, 3 ML: CONT; INH, 1.7 ML; CONT; INH
     Route: 055
     Dates: start: 20110914, end: 20110915
  7. AMOXICILLIN [Concomitant]
  8. ACETAMINOPHEN [Concomitant]

REACTIONS (1)
  - MEAN CELL HAEMOGLOBIN CONCENTRATION DECREASED [None]
